FAERS Safety Report 10980847 (Version 2)
Quarter: 2015Q2

REPORT INFORMATION
  Report Type: Spontaneous
  Country: US (occurrence: US)
  Receive Date: 20150402
  Receipt Date: 20150525
  Transmission Date: 20150821
  Serious: No
  Sender: FDA-Public Use
  Company Number: US-JNJFOC-20150117981

PATIENT
  Age: 76 Year
  Sex: Female

DRUGS (3)
  1. IMODIUM A-D [Suspect]
     Active Substance: LOPERAMIDE HYDROCHLORIDE
     Route: 048
  2. IMODIUM A-D [Suspect]
     Active Substance: LOPERAMIDE HYDROCHLORIDE
     Indication: DIARRHOEA
     Dosage: 1.5-2 TSP IN THE MORNING, SOMETIMES IN??THE AFTERNOON, 1 TSP IN THE EVENING SOMETIMES A 4TH DOSE
     Route: 048
  3. SYNTHROID [Suspect]
     Active Substance: LEVOTHYROXINE SODIUM
     Indication: THYROID DISORDER
     Route: 065

REACTIONS (1)
  - Thyroid function test abnormal [Recovering/Resolving]

NARRATIVE: CASE EVENT DATE: 20150109
